FAERS Safety Report 6147740-4 (Version None)
Quarter: 2009Q2

REPORT INFORMATION
  Report Type: 
  Country: None (occurrence: None)
  Receive Date: 20090402
  Receipt Date: 20090317
  Transmission Date: 20091009
  Serious: Yes (Hospitalization, Other)
  Sender: FDA-Public Use
  Company Number: 530#6#2007-00058

PATIENT
  Sex: Female
  Weight: 76 kg

DRUGS (24)
  1. NEUPRO [Suspect]
     Indication: PARKINSON'S DISEASE
     Dosage: (2 MG QD TRANSDERMAL), (4 MG QD TRANSDERMAL), (6 MG QD TRANSDERMAL)
     Route: 062
     Dates: start: 20060817, end: 20060831
  2. NEUPRO [Suspect]
     Indication: PARKINSON'S DISEASE
     Dosage: (2 MG QD TRANSDERMAL), (4 MG QD TRANSDERMAL), (6 MG QD TRANSDERMAL)
     Route: 062
     Dates: start: 20060901, end: 20070515
  3. NEUPRO [Suspect]
     Indication: PARKINSON'S DISEASE
     Dosage: (2 MG QD TRANSDERMAL), (4 MG QD TRANSDERMAL), (6 MG QD TRANSDERMAL)
     Route: 062
     Dates: start: 20070516, end: 20081130
  4. LEVODOPA-CARBIDOPA (CARBIDOPA 25MG AND LEVODOPA 100MG) [Suspect]
     Indication: PARKINSON'S DISEASE
     Dosage: (100/25 MG ORAL)
     Route: 048
     Dates: start: 20061213, end: 20061216
  5. LEVODOPA-CARBIDOPA (CARBIDOPA 25MG AND LEVODOPA 100MG) [Suspect]
     Indication: PARKINSON'S DISEASE
     Dosage: (100/25 MG ORAL)
     Route: 048
     Dates: start: 20061217, end: 20071115
  6. LEVODOPA-CARBIDOPA (CARBIDOPA 25MG AND LEVODOPA 100MG) [Suspect]
     Indication: PARKINSON'S DISEASE
     Dosage: (100/25 MG ORAL)
     Route: 048
     Dates: start: 20071116, end: 20081130
  7. AMANTADINE HCL [Suspect]
     Indication: PARKINSON'S DISEASE
     Dosage: (100 MG QD)
     Dates: start: 20071130, end: 20081130
  8. LEVODOPA-CARBIDOPA (CARBIDOPA 12.5MG AND LEVODOPA 50MG) [Suspect]
     Indication: PARKINSON'S DISEASE
     Dosage: SEE IMAGE
     Route: 048
     Dates: start: 20061116, end: 20061119
  9. LEVODOPA-CARBIDOPA (CARBIDOPA 12.5MG AND LEVODOPA 50MG) [Suspect]
     Indication: PARKINSON'S DISEASE
     Dosage: SEE IMAGE
     Route: 048
     Dates: start: 20061120, end: 20061122
  10. LEVODOPA-CARBIDOPA (CARBIDOPA 12.5MG AND LEVODOPA 50MG) [Suspect]
     Indication: PARKINSON'S DISEASE
     Dosage: SEE IMAGE
     Route: 048
     Dates: start: 20061123, end: 20061125
  11. LEVODOPA-CARBIDOPA (CARBIDOPA 12.5MG AND LEVODOPA 50MG) [Suspect]
     Indication: PARKINSON'S DISEASE
     Dosage: SEE IMAGE
     Route: 048
     Dates: start: 20061204, end: 20061206
  12. LEVODOPA-CARBIDOPA (CARBIDOPA 12.5MG AND LEVODOPA 50MG) [Suspect]
     Indication: PARKINSON'S DISEASE
     Dosage: SEE IMAGE
     Route: 048
     Dates: start: 20061207, end: 20061209
  13. LEVODOPA-CARBIDOPA (CARBIDOPA 12.5MG AND LEVODOPA 50MG) [Suspect]
     Indication: PARKINSON'S DISEASE
     Dosage: SEE IMAGE
     Route: 048
     Dates: start: 20061210, end: 20061212
  14. LEVODOPA-CARBIDOPA (CARBIDOPA 12.5MG AND LEVODOPA 50MG) [Suspect]
     Indication: PARKINSON'S DISEASE
     Dosage: SEE IMAGE
     Route: 048
     Dates: start: 20061213, end: 20061216
  15. ENALAPRIL [Concomitant]
  16. ALENDRONIC ACID [Concomitant]
  17. OPIPRAMOL [Concomitant]
  18. OMEPRAZOLE [Concomitant]
  19. TRIAMTERENE AND HYDROCHLOROTHIAZIDE [Concomitant]
  20. LORMETAZEPAM [Concomitant]
  21. IBUPROFEN [Concomitant]
  22. CALCIUM [Concomitant]
  23. LEVOTHYROXINE SODIUM [Concomitant]
  24. OLMESARTAN [Concomitant]

REACTIONS (2)
  - DEHYDRATION [None]
  - FAECALOMA [None]
